FAERS Safety Report 6220526-8 (Version None)
Quarter: 2009Q2

REPORT INFORMATION
  Report Type: 
  Country: None (occurrence: None)
  Receive Date: 20090604
  Receipt Date: 20090519
  Transmission Date: 20091009
  Serious: Yes (Death)
  Sender: FDA-Public Use
  Company Number: B0576374A

PATIENT

DRUGS (2)
  1. MELPHALAN         (FORMULATION UNKNOWN) (GENERIC) (MELPHALAN) [Suspect]
     Indication: MULTIPLE MYELOMA
     Dosage: 200 MG/M2 / INTRAVENOUS
     Route: 042
  2. GRANULOCYTE COL.STIM.FACT (FORMULATION UNKNOWN) (GRANULOCYTE COL.STIM. [Suspect]
     Dosage: 10 MCG/KG / SUBCUTANEOUS
     Route: 058

REACTIONS (1)
  - PNEUMONIA CYTOMEGALOVIRAL [None]
